FAERS Safety Report 13546907 (Version 3)
Quarter: 2017Q3

REPORT INFORMATION
  Report Type: Spontaneous
  Country: US (occurrence: US)
  Receive Date: 20170515
  Receipt Date: 20170816
  Transmission Date: 20171127
  Serious: Yes (Other)
  Sender: FDA-Public Use
  Company Number: US-PFIZER INC-2017207737

PATIENT
  Age: 75 Year
  Sex: Female
  Weight: 56.69 kg

DRUGS (4)
  1. LYRICA [Suspect]
     Active Substance: PREGABALIN
     Indication: FIBROMYALGIA
     Dosage: 75 MG, 2X/DAY
     Route: 048
  2. CELEBREX [Suspect]
     Active Substance: CELECOXIB
     Indication: SCIATICA
  3. CELEBREX [Suspect]
     Active Substance: CELECOXIB
     Indication: MYALGIA
     Dosage: 200 MG, 1X/DAY
     Route: 048
  4. CELEBREX [Suspect]
     Active Substance: CELECOXIB
     Indication: FIBROMYALGIA

REACTIONS (5)
  - Malaise [Unknown]
  - Injury corneal [Unknown]
  - Visual impairment [Unknown]
  - Inflammation [Recovering/Resolving]
  - Infection [Recovered/Resolved]
